FAERS Safety Report 14447178 (Version 2)
Quarter: 2018Q1

REPORT INFORMATION
  Report Type: Report from Study
  Country: US (occurrence: US)
  Receive Date: 20180126
  Receipt Date: 20180228
  Transmission Date: 20180509
  Serious: Yes (Other)
  Sender: FDA-Public Use
  Company Number: US-GILEAD-2018-0317590

PATIENT
  Age: 32 Year
  Sex: Female
  Weight: 87.5 kg

DRUGS (23)
  1. AMBRISENTAN [Suspect]
     Active Substance: AMBRISENTAN
     Indication: PULMONARY ARTERIAL HYPERTENSION
  2. CARVEDILOL. [Concomitant]
     Active Substance: CARVEDILOL
  3. CYANOCOBALAMIN. [Concomitant]
     Active Substance: CYANOCOBALAMIN
  4. MULTIVITAMIN                       /00097801/ [Concomitant]
     Active Substance: VITAMINS
  5. OXYCODONE [Concomitant]
     Active Substance: OXYCODONE
  6. FUROSEMIDE. [Concomitant]
     Active Substance: FUROSEMIDE
  7. ORENITRAM [Concomitant]
     Active Substance: TREPROSTINIL
  8. FLUTICASONE. [Concomitant]
     Active Substance: FLUTICASONE
  9. SPIRONOLACTONE. [Concomitant]
     Active Substance: SPIRONOLACTONE
  10. ESCITALOPRAM [Concomitant]
     Active Substance: ESCITALOPRAM OXALATE
  11. AMBRISENTAN [Suspect]
     Active Substance: AMBRISENTAN
     Indication: HEPATIC CIRRHOSIS
  12. NORETHINDRONE                      /00044901/ [Concomitant]
     Active Substance: NORETHINDRONE
  13. PREDNISONE. [Concomitant]
     Active Substance: PREDNISONE
  14. AMBRISENTAN [Suspect]
     Active Substance: AMBRISENTAN
     Indication: PORTOPULMONARY HYPERTENSION
     Dosage: 10 MG, QD
     Route: 048
     Dates: start: 2008
  15. LEVETIRACETAM. [Concomitant]
     Active Substance: LEVETIRACETAM
  16. LORATADINE. [Concomitant]
     Active Substance: LORATADINE
  17. OLANZAPINE. [Concomitant]
     Active Substance: OLANZAPINE
  18. SOLIFENACIN [Concomitant]
     Active Substance: SOLIFENACIN
  19. ATROPINE SULFATE W/DIPHENOXYLATE [Concomitant]
     Active Substance: ATROPINE SULFATE\DIPHENOXYLATE
  20. CHOLECALCIFEROL [Concomitant]
     Active Substance: CHOLECALCIFEROL
  21. TRACLEER [Concomitant]
     Active Substance: BOSENTAN
  22. ALPRAZOLAM. [Concomitant]
     Active Substance: ALPRAZOLAM
  23. NORTRIPTYLINE [Concomitant]
     Active Substance: NORTRIPTYLINE

REACTIONS (2)
  - Ligament sprain [Unknown]
  - Seizure [Recovered/Resolved]

NARRATIVE: CASE EVENT DATE: 20180115
